FAERS Safety Report 10573001 (Version 1)
Quarter: 2014Q4

REPORT INFORMATION
  Report Type: Spontaneous
  Country: DE (occurrence: None)
  Receive Date: 20141106
  Receipt Date: 20141106
  Transmission Date: 20150529
  Serious: Yes (Hospitalization)
  Sender: FDA-Public Use
  Company Number: FK201404738

PATIENT
  Age: 27 Year
  Sex: Female

DRUGS (2)
  1. RANITIDINE [Suspect]
     Active Substance: RANITIDINE\RANITIDINE HYDROCHLORIDE
     Indication: GASTRITIS
     Dosage: 50 MG, INTRAVENOUS (NOT OTHERWISE SPECIFIED)
     Route: 042
     Dates: start: 20140818, end: 20140822
  2. CEFUROXIME (MANUFACTURER UNKNOWN) (CEFUROXIME) (CEFUROXIME) [Suspect]
     Active Substance: CEFUROXIME
     Indication: ERYSIPELAS
     Route: 042
     Dates: start: 20140818, end: 20140822

REACTIONS (1)
  - Pancreatitis [None]

NARRATIVE: CASE EVENT DATE: 20140826
